FAERS Safety Report 4699894-4 (Version None)
Quarter: 2005Q2

REPORT INFORMATION
  Report Type: 
  Country: None (occurrence: None)
  Receive Date: 20050624
  Receipt Date: 20050613
  Transmission Date: 20051028
  Serious: Yes (Hospitalization)
  Sender: FDA-Public Use
  Company Number: MK200506-0194-1

PATIENT
  Age: 36 Year
  Sex: Female

DRUGS (6)
  1. TRAMADOL HYDROCHLORIDE TABS 50MG [Suspect]
     Indication: OVERDOSE
     Dosage: 750 MG, ONE TIME, PO
     Route: 048
  2. MIRTAZAPINE [Suspect]
     Dosage: 30 MG, Q D, PO
     Route: 048
  3. GABAPENTIN [Concomitant]
  4. ZOLPIDEM [Concomitant]
  5. LEVOTHYROXINE [Concomitant]
  6. CONJUGATED ESTROGENS [Concomitant]

REACTIONS (5)
  - GRAND MAL CONVULSION [None]
  - HEADACHE [None]
  - LOSS OF CONSCIOUSNESS [None]
  - OVERDOSE [None]
  - SEROTONIN SYNDROME [None]
